FAERS Safety Report 14894220 (Version 2)
Quarter: 2018Q2

REPORT INFORMATION
  Report Type: Report from Study
  Country: BR (occurrence: BR)
  Receive Date: 20180515
  Receipt Date: 20180529
  Transmission Date: 20180711
  Serious: Yes (Other)
  Sender: FDA-Public Use
  Company Number: PHHY2016BR166258

PATIENT
  Age: 71 Year
  Sex: Female
  Weight: 52 kg

DRUGS (3)
  1. LEVOTHYROXINE. [Concomitant]
     Active Substance: LEVOTHYROXINE
     Indication: THYROIDECTOMY
     Dosage: 1 DF, QD
     Route: 048
     Dates: start: 2008
  2. OMEGA 3 [Concomitant]
     Active Substance: OMEGA-3 FATTY ACIDS
     Indication: MACULAR DEGENERATION
     Dosage: 1 DF, QD
     Route: 048
     Dates: start: 2013
  3. ACLASTA [Suspect]
     Active Substance: ZOLEDRONIC ACID
     Indication: OSTEOPOROSIS
     Dosage: 1 DF, Q12MO
     Route: 042
     Dates: start: 2012

REACTIONS (5)
  - Drug ineffective [Unknown]
  - Blindness [Unknown]
  - Macular degeneration [Not Recovered/Not Resolved]
  - Eye haemorrhage [Unknown]
  - Bone density decreased [Unknown]

NARRATIVE: CASE EVENT DATE: 201301
